FAERS Safety Report 12899129 (Version 2)
Quarter: 2016Q4

REPORT INFORMATION
  Report Type: Spontaneous
  Country: JP (occurrence: JP)
  Receive Date: 20161101
  Receipt Date: 20161102
  Transmission Date: 20170207
  Serious: Yes (Death, Other)
  Sender: FDA-Public Use
  Company Number: JP-CELGENEUS-JPN-2016107785

PATIENT
  Age: 5 Decade

DRUGS (1)
  1. REVLIMID [Suspect]
     Active Substance: LENALIDOMIDE
     Indication: PRODUCT USED FOR UNKNOWN INDICATION
     Route: 048
     Dates: start: 201008, end: 2011

REACTIONS (4)
  - Haemorrhage [Unknown]
  - Nerve injury [Unknown]
  - Disease progression [Fatal]
  - Plasmacytoma [Unknown]

NARRATIVE: CASE EVENT DATE: 2011
